FAERS Safety Report 7075647-7 (Version None)
Quarter: 2010Q4

REPORT INFORMATION
  Report Type: 
  Country: None (occurrence: None)
  Receive Date: 20101030
  Receipt Date: 20101009
  Transmission Date: 20110411
  Serious: No
  Sender: FDA-Public Use
  Company Number: US-WYE-H18105010

PATIENT
  Sex: Female
  Weight: 73.55 kg

DRUGS (4)
  1. PRISTIQ [Suspect]
     Indication: DEPRESSION
     Route: 048
     Dates: start: 20090601, end: 20090101
  2. PRISTIQ [Suspect]
     Indication: ANXIETY DISORDER
     Dates: start: 20090101, end: 20090101
  3. PRISTIQ [Suspect]
     Dosage: ^TAPER HER DOSE OVER SIX DAYS, TOOK SPLIT 100 MG TABLETS AS INSTRUCTED BY MD^
     Dates: start: 20090101, end: 20090101
  4. PRISTIQ [Suspect]
     Dates: start: 20090101, end: 20100801

REACTIONS (18)
  - ANXIETY [None]
  - BLOOD PRESSURE INCREASED [None]
  - CONTUSION [None]
  - COUGH [None]
  - DISCOMFORT [None]
  - DYSPHEMIA [None]
  - FEELING ABNORMAL [None]
  - FEELING JITTERY [None]
  - HEART RATE INCREASED [None]
  - HYPERHIDROSIS [None]
  - INCORRECT DOSE ADMINISTERED [None]
  - KIDNEY INFECTION [None]
  - MENORRHAGIA [None]
  - NERVOUSNESS [None]
  - RESTLESSNESS [None]
  - SLEEP DISORDER [None]
  - TREMOR [None]
  - VISION BLURRED [None]
